FAERS Safety Report 12397808 (Version 3)
Quarter: 2016Q3

REPORT INFORMATION
  Report Type: Spontaneous
  Country: NO (occurrence: NO)
  Receive Date: 20160524
  Receipt Date: 20160808
  Transmission Date: 20161109
  Serious: Yes (Hospitalization, Other)
  Sender: FDA-Public Use
  Company Number: NO-NOVOPROD-491717

PATIENT
  Age: 46 Year
  Sex: Male

DRUGS (2)
  1. LEVEMIR [Suspect]
     Active Substance: INSULIN DETEMIR
     Indication: TYPE 2 DIABETES MELLITUS
     Dosage: UNK
     Route: 058
     Dates: start: 2013, end: 20160306
  2. LANTUS [Suspect]
     Active Substance: INSULIN GLARGINE
     Indication: TYPE 2 DIABETES MELLITUS
     Route: 058
     Dates: start: 20160307, end: 20160315

REACTIONS (6)
  - Injection site ulcer [Recovering/Resolving]
  - Injection site rash [Recovering/Resolving]
  - Secretion discharge [Recovering/Resolving]
  - Injection site swelling [Recovering/Resolving]
  - Injection site hypersensitivity [Recovered/Resolved]
  - Injection site extravasation [Recovering/Resolving]

NARRATIVE: CASE EVENT DATE: 20160225
